FAERS Safety Report 24803993 (Version 1)
Quarter: 2025Q1

REPORT INFORMATION
  Report Type: Spontaneous
  Country: US (occurrence: US)
  Receive Date: 20250103
  Receipt Date: 20250103
  Transmission Date: 20250409
  Serious: No
  Sender: Haleon PLC
  Company Number: US-HALEON-2219876

PATIENT
  Sex: Female

DRUGS (1)
  1. THERAFLU DAYTIME SEVERE COLD AND COUGH [Suspect]
     Active Substance: ACETAMINOPHEN\DEXTROMETHORPHAN HYDROBROMIDE\PHENYLEPHRINE HYDROCHLORIDE
     Indication: Oropharyngeal pain

REACTIONS (1)
  - Therapeutic product effect incomplete [Not Recovered/Not Resolved]
